FAERS Safety Report 10263999 (Version 1)
Quarter: 2014Q2

REPORT INFORMATION
  Report Type: Spontaneous
  Country: US (occurrence: US)
  Receive Date: 20140627
  Receipt Date: 20140627
  Transmission Date: 20141212
  Serious: Yes (Other)
  Sender: FDA-Public Use
  Company Number: US-BIOGENIDEC-2014BI061555

PATIENT
  Sex: Male

DRUGS (3)
  1. TYSABRI [Suspect]
     Indication: MULTIPLE SCLEROSIS
     Route: 042
     Dates: start: 20071015
  2. LOSARTAN [Concomitant]
  3. COUMADIN [Concomitant]

REACTIONS (3)
  - Deep vein thrombosis [Unknown]
  - Hip surgery [Unknown]
  - Multiple sclerosis relapse [Unknown]
